FAERS Safety Report 9585901 (Version 1)
Quarter: 2013Q4

REPORT INFORMATION
  Report Type: Spontaneous
  Country: US (occurrence: None)
  Receive Date: 20131002
  Receipt Date: 20131002
  Transmission Date: 20140711
  Serious: Yes (Other)
  Sender: FDA-Public Use
  Company Number: None

PATIENT
  Age: 50 Year
  Sex: Female

DRUGS (6)
  1. ENBREL [Suspect]
     Indication: RHEUMATOID ARTHRITIS
     Route: 058
     Dates: start: 20130321, end: 20131001
  2. LORATADINE [Concomitant]
  3. MELOXICAM [Concomitant]
  4. VITAMIN D [Concomitant]
  5. PREDNISONE [Concomitant]
  6. CIMETIDINE [Concomitant]

REACTIONS (1)
  - Skin discolouration [None]
